FAERS Safety Report 26008155 (Version 1)
Quarter: 2025Q4

REPORT INFORMATION
  Report Type: Spontaneous
  Country: US (occurrence: US)
  Receive Date: 20251106
  Receipt Date: 20251106
  Transmission Date: 20260118
  Serious: No
  Sender: SANOFI AVENTIS
  Company Number: US-SA-2025SA323128

PATIENT
  Age: 35 Year
  Sex: Female

DRUGS (1)
  1. DUPIXENT [Suspect]
     Active Substance: DUPILUMAB
     Indication: Dermatitis atopic
     Dosage: 300 MG, QOW
     Route: 058

REACTIONS (8)
  - Pain [Unknown]
  - Dermatitis atopic [Recovered/Resolved]
  - Rash [Unknown]
  - Pruritus [Unknown]
  - Erythema [Unknown]
  - Skin discolouration [Unknown]
  - Dry skin [Unknown]
  - Product dose omission issue [Recovered/Resolved]
